FAERS Safety Report 5445976-9 (Version None)
Quarter: 2007Q3

REPORT INFORMATION
  Report Type: 
  Country: None (occurrence: None)
  Receive Date: 20070907
  Receipt Date: 20070828
  Transmission Date: 20080115
  Serious: Yes (Other)
  Sender: FDA-Public Use
  Company Number: US-JNJFOC-20070703903

PATIENT
  Sex: Female
  Weight: 60.33 kg

DRUGS (3)
  1. HALDOL [Suspect]
     Indication: AGITATION
     Route: 042
  2. DEPAKOTE [Concomitant]
  3. REMERON [Concomitant]
     Indication: DEPRESSION

REACTIONS (7)
  - AGITATION [None]
  - DYSPHAGIA [None]
  - DYSPHASIA [None]
  - INCORRECT ROUTE OF DRUG ADMINISTRATION [None]
  - LETHARGY [None]
  - POSTURE ABNORMAL [None]
  - SOMNOLENCE [None]
